FAERS Safety Report 19595669 (Version 3)
Quarter: 2021Q3

REPORT INFORMATION
  Report Type: Report from Study
  Country: BG (occurrence: BG)
  Receive Date: 20210722
  Receipt Date: 20210930
  Transmission Date: 20211014
  Serious: Yes (Death, Hospitalization, Other)
  Sender: FDA-Public Use
  Company Number: BG-TAKEDA-2021TUS038547

PATIENT
  Age: 33 Year
  Sex: Female

DRUGS (1)
  1. VEDOLIZUMAB [Suspect]
     Active Substance: VEDOLIZUMAB
     Indication: CROHN^S DISEASE
     Dosage: 300 MILLIGRAM, Q4WEEKS
     Route: 042
     Dates: start: 20191218, end: 20210826

REACTIONS (5)
  - Blood albumin decreased [Unknown]
  - Death [Fatal]
  - Pleural effusion [Unknown]
  - Crohn^s disease [Unknown]
  - Malabsorption [Unknown]

NARRATIVE: CASE EVENT DATE: 20210923
